FAERS Safety Report 13971858 (Version 1)
Quarter: 2017Q3

REPORT INFORMATION
  Report Type: Spontaneous
  Country: US (occurrence: US)
  Receive Date: 20170914
  Receipt Date: 20170914
  Transmission Date: 20171128
  Serious: Yes (Other)
  Sender: FDA-Public Use
  Company Number: None

PATIENT
  Age: 50 Year
  Sex: Female
  Weight: 81.9 kg

DRUGS (4)
  1. CLONODINE [Concomitant]
  2. TRAZODONE [Concomitant]
     Active Substance: TRAZODONE HYDROCHLORIDE
  3. VIVITROL [Suspect]
     Active Substance: NALTREXONE
     Indication: DRUG DEPENDENCE
     Dosage: ?          OTHER FREQUENCY:EVERY 28 DAYS;?INTRAMUSCULAR
     Route: 030
     Dates: start: 20170815, end: 20170908
  4. BENADRYL [Concomitant]
     Active Substance: DIPHENHYDRAMINE HYDROCHLORIDE

REACTIONS (6)
  - Injection site induration [None]
  - Headache [None]
  - Injection site mass [None]
  - Sleep disorder [None]
  - Nasopharyngitis [None]
  - Injection site pruritus [None]

NARRATIVE: CASE EVENT DATE: 20170815
